FAERS Safety Report 22006049 (Version 1)
Quarter: 2023Q1

REPORT INFORMATION
  Report Type: Spontaneous
  Country: US (occurrence: US)
  Receive Date: 20230217
  Receipt Date: 20230217
  Transmission Date: 20230418
  Serious: Yes (Hospitalization, Other)
  Sender: FDA-Public Use
  Company Number: US-APOTEX-2023AP003535

PATIENT
  Age: 49 Year
  Sex: Female

DRUGS (2)
  1. MYCOPHENOLIC ACID [Suspect]
     Active Substance: MYCOPHENOLIC ACID
     Indication: Immunosuppressant drug therapy
     Dosage: UNK
     Route: 065
  2. TACROLIMUS [Suspect]
     Active Substance: TACROLIMUS
     Indication: Immunosuppressant drug therapy
     Dosage: UNK
     Route: 065

REACTIONS (7)
  - Acute kidney injury [Recovered/Resolved]
  - Multiple organ dysfunction syndrome [Recovered/Resolved]
  - Mental status changes [Recovered/Resolved]
  - Renal abscess [Recovered/Resolved]
  - Emphysematous pyelonephritis [Recovered/Resolved]
  - Sepsis [Recovered/Resolved]
  - Treatment noncompliance [Unknown]
